FAERS Safety Report 20465580 (Version 7)
Quarter: 2022Q2

REPORT INFORMATION
  Report Type: Report from Study
  Country: CA (occurrence: CA)
  Receive Date: 20220212
  Receipt Date: 20220528
  Transmission Date: 20220721
  Serious: Yes (Death, Hospitalization)
  Sender: FDA-Public Use
  Company Number: CA-ALXN-A202201769

PATIENT
  Age: 2 Month
  Sex: Female
  Weight: 4.47 kg

DRUGS (2)
  1. KANUMA [Suspect]
     Active Substance: SEBELIPASE ALFA
     Dosage: 1 MG/KG, QW
     Route: 042
     Dates: start: 20220203
  2. KANUMA [Suspect]
     Active Substance: SEBELIPASE ALFA
     Indication: Lysosomal acid lipase deficiency
     Dosage: 3 MG/KG, QW
     Route: 042
     Dates: start: 20211217

REACTIONS (3)
  - Illness [Fatal]
  - Rash [Recovering/Resolving]
  - Eye swelling [Recovered/Resolved]

NARRATIVE: CASE EVENT DATE: 20220101
